FAERS Safety Report 8809636 (Version 2)
Quarter: 2014Q3

REPORT INFORMATION
  Report Type: Report from Study
  Country: US (occurrence: US)
  Receive Date: 20120926
  Receipt Date: 20140828
  Transmission Date: 20150326
  Serious: Yes (Hospitalization)
  Sender: FDA-Public Use
  Company Number: US-ROCHE-1128586

PATIENT
  Age: 57 Year
  Sex: Male
  Weight: 86.8 kg

DRUGS (3)
  1. TEMODAR [Concomitant]
     Active Substance: TEMOZOLOMIDE
  2. AVASTIN [Suspect]
     Active Substance: BEVACIZUMAB
     Indication: BRAIN NEOPLASM MALIGNANT
     Route: 042
  3. AVASTIN [Suspect]
     Active Substance: BEVACIZUMAB
     Indication: GLIOBLASTOMA

REACTIONS (5)
  - Off label use [Unknown]
  - Mental status changes [Unknown]
  - Dysarthria [Unknown]
  - Dizziness [Unknown]
  - Muscular weakness [Unknown]

NARRATIVE: CASE EVENT DATE: 200807
